FAERS Safety Report 17675373 (Version 1)
Quarter: 2020Q2

REPORT INFORMATION
  Report Type: Spontaneous
  Country: US (occurrence: US)
  Receive Date: 20200415
  Receipt Date: 20200415
  Transmission Date: 20200714
  Serious: Yes (Death)
  Sender: FDA-Public Use
  Company Number: None

PATIENT
  Age: 49 Year
  Sex: Male
  Weight: 74 kg

DRUGS (1)
  1. YESCARTA [Suspect]
     Active Substance: AXICABTAGENE CILOLEUCEL
     Indication: DIFFUSE LARGE B-CELL LYMPHOMA REFRACTORY
     Dosage: ?          OTHER DOSE:2X10^8;?
     Route: 042
     Dates: start: 20200306, end: 20200306

REACTIONS (9)
  - Multiple organ dysfunction syndrome [None]
  - Disease progression [None]
  - Enterococcal infection [None]
  - Candida infection [None]
  - Cholecystitis [None]
  - Febrile neutropenia [None]
  - Clostridium difficile infection [None]
  - Hypotension [None]
  - Septic shock [None]

NARRATIVE: CASE EVENT DATE: 20200315
